FAERS Safety Report 4562975-X (Version None)
Quarter: 2005Q1

REPORT INFORMATION
  Report Type: 
  Country: None (occurrence: None)
  Receive Date: 20050121
  Receipt Date: 20050117
  Transmission Date: 20050727
  Serious: Yes (Hospitalization)
  Sender: FDA-Public Use
  Company Number: 2004105638

PATIENT
  Age: 66 Year
  Sex: Male

DRUGS (2)
  1. LIPITOR [Suspect]
     Indication: HYPERCHOLESTEROLAEMIA
     Dosage: 10 MG (10 MG, 1 IN 1 D), ORAL
     Route: 048
     Dates: start: 20040906, end: 20041129
  2. LOSARTAN POTASSIUM [Concomitant]

REACTIONS (11)
  - ALANINE AMINOTRANSFERASE ABNORMAL [None]
  - BLOOD GLUCOSE ABNORMAL [None]
  - DIFFICULTY IN WALKING [None]
  - DRUG INEFFECTIVE [None]
  - EAR DISCOMFORT [None]
  - HEADACHE [None]
  - NAUSEA [None]
  - NYSTAGMUS [None]
  - TINNITUS [None]
  - VERTIGO [None]
  - WHITE BLOOD CELL COUNT ABNORMAL [None]
